FAERS Safety Report 17383983 (Version 1)
Quarter: 2020Q1

REPORT INFORMATION
  Report Type: Spontaneous
  Country: US (occurrence: US)
  Receive Date: 20200206
  Receipt Date: 20200206
  Transmission Date: 20200409
  Serious: Yes (Other)
  Sender: FDA-Public Use
  Company Number: US-ABBVIE-19K-163-2870091-00

PATIENT
  Age: 27 Year
  Sex: Male

DRUGS (1)
  1. HUMIRA [Suspect]
     Active Substance: ADALIMUMAB
     Indication: PRODUCT USED FOR UNKNOWN INDICATION
     Route: 058

REACTIONS (6)
  - Device issue [Recovered/Resolved]
  - Emotional disorder [Unknown]
  - Delusion [Unknown]
  - Confusional state [Unknown]
  - Pain [Unknown]
  - Product contamination [Unknown]

NARRATIVE: CASE EVENT DATE: 20190718
